FAERS Safety Report 8550045-5 (Version None)
Quarter: 2012Q3

REPORT INFORMATION
  Report Type: 
  Country: None (occurrence: None)
  Receive Date: 20120720
  Receipt Date: 20120720
  Transmission Date: 20120928
  Serious: No
  Sender: FDA-Public Use
  Company Number: None

PATIENT
  Sex: Male
  Weight: 81.6 kg

DRUGS (1)
  1. INTRON A [Suspect]
     Dosage: 40 MILTION IU
     Dates: end: 20120702

REACTIONS (3)
  - PAIN IN EXTREMITY [None]
  - NAUSEA [None]
  - BACK PAIN [None]
